FAERS Safety Report 6988999-0 (Version None)
Quarter: 2010Q3

REPORT INFORMATION
  Report Type: 
  Country: None (occurrence: None)
  Receive Date: 20100916
  Receipt Date: 20091014
  Transmission Date: 20110219
  Serious: Yes (Other)
  Sender: FDA-Public Use
  Company Number: US-PFIZER INC-2006081230

PATIENT
  Sex: Female
  Weight: 52.608 kg

DRUGS (2)
  1. LYRICA [Suspect]
     Indication: NERVE INJURY
     Dosage: UNK
     Route: 065
     Dates: start: 20060101, end: 20060622
  2. LYRICA [Suspect]
     Indication: NEURALGIA

REACTIONS (6)
  - BLISTER [None]
  - GASTRIC DISORDER [None]
  - PRURITUS [None]
  - SCAR [None]
  - SKIN LESION [None]
  - SWELLING [None]
